FAERS Safety Report 16077787 (Version 1)
Quarter: 2019Q1

REPORT INFORMATION
  Report Type: Spontaneous
  Country: PL (occurrence: PL)
  Receive Date: 20190315
  Receipt Date: 20190315
  Transmission Date: 20190418
  Serious: Yes (Other)
  Sender: FDA-Public Use
  Company Number: PL-ELI_LILLY_AND_COMPANY-PL201903001203

PATIENT
  Age: 80 Year
  Sex: Female

DRUGS (9)
  1. HUMALOG [Suspect]
     Active Substance: INSULIN LISPRO
     Dosage: 7 [IU], QID
  2. HUMALOG [Suspect]
     Active Substance: INSULIN LISPRO
     Dosage: 4 [IU], QID
  3. ATORVASTATIN [Concomitant]
     Active Substance: ATORVASTATIN
     Indication: PRODUCT USED FOR UNKNOWN INDICATION
     Dosage: 20 MG, EACH EVENING
  4. HUMALOG [Suspect]
     Active Substance: INSULIN LISPRO
     Dosage: 4 [IU], QID
  5. ABASAGLAR [Suspect]
     Active Substance: INSULIN GLARGINE
     Dosage: 12 [IU], EACH EVENING
     Route: 065
  6. HUMALOG [Suspect]
     Active Substance: INSULIN LISPRO
     Dosage: 4 [IU], QID
  7. HUMALOG [Suspect]
     Active Substance: INSULIN LISPRO
     Dosage: 6 [IU], QID
  8. HUMALOG [Suspect]
     Active Substance: INSULIN LISPRO
     Indication: TYPE 2 DIABETES MELLITUS
     Dosage: 8 [IU], QID
  9. ABASAGLAR [Suspect]
     Active Substance: INSULIN GLARGINE
     Indication: TYPE 2 DIABETES MELLITUS
     Dosage: 14 [IU], EACH EVENING
     Route: 065

REACTIONS (6)
  - Cataract [Unknown]
  - Headache [Unknown]
  - Chronic kidney disease [Unknown]
  - Weight decreased [Unknown]
  - Paraproteinaemia [Unknown]
  - Oedema peripheral [Unknown]
